FAERS Safety Report 5950514-8 (Version None)
Quarter: 2008Q4

REPORT INFORMATION
  Report Type: 
  Country: None (occurrence: None)
  Receive Date: 20081022
  Receipt Date: 20080602
  Transmission Date: 20090506
  Serious: No
  Sender: FDA-Public Use
  Company Number: ALL1-2008-01659

PATIENT
  Age: 5 Year
  Sex: Male

DRUGS (2)
  1. VYVANSE [Suspect]
     Indication: ATTENTION DEFICIT/HYPERACTIVITY DISORDER
     Dosage: 30 MG, 1X/DAY:QD, ORAL
     Route: 048
     Dates: start: 20080512, end: 20080513
  2. CLONIDINE [Concomitant]

REACTIONS (6)
  - DECREASED ACTIVITY [None]
  - DERMATILLOMANIA [None]
  - EUPHORIC MOOD [None]
  - INSOMNIA [None]
  - OFF LABEL USE [None]
  - URINARY INCONTINENCE [None]
